FAERS Safety Report 25254077 (Version 1)
Quarter: 2025Q2

REPORT INFORMATION
  Report Type: Spontaneous
  Country: US (occurrence: US)
  Receive Date: 20250430
  Receipt Date: 20250430
  Transmission Date: 20250716
  Serious: Yes (Hospitalization, Other)
  Sender: RANBAXY
  Company Number: US-SUN PHARMACEUTICAL INDUSTRIES LTD-2025R1-505324

PATIENT
  Age: 33 Year
  Sex: Female

DRUGS (2)
  1. CEPHALEXIN [Suspect]
     Active Substance: CEPHALEXIN
     Indication: Cystitis
     Route: 065
  2. FERROUS SULFATE [Suspect]
     Active Substance: FERROUS SULFATE
     Indication: Product used for unknown indication
     Route: 065

REACTIONS (7)
  - Arteriovenous fistula [Unknown]
  - Anaemia [Unknown]
  - Cyst [Unknown]
  - Exposure during pregnancy [Unknown]
  - Haematuria [Recovered/Resolved]
  - Live birth [Unknown]
  - Therapy non-responder [Unknown]
